FAERS Safety Report 21438312 (Version 1)
Quarter: 2022Q4

REPORT INFORMATION
  Report Type: Spontaneous
  Country: FI (occurrence: FI)
  Receive Date: 20221011
  Receipt Date: 20221011
  Transmission Date: 20230112
  Serious: Yes (Disabling, Other)
  Sender: FDA-Public Use
  Company Number: None

PATIENT
  Age: 66 Year
  Sex: Male

DRUGS (5)
  1. XGEVA [Suspect]
     Active Substance: DENOSUMAB
     Indication: Metastases to bone
     Dosage: 120 MILLIGRAM, Q4WK
     Route: 058
     Dates: start: 201906, end: 202205
  2. FIRMAGON [Concomitant]
     Active Substance: DEGARELIX ACETATE
  3. ZYTIGA [Concomitant]
     Active Substance: ABIRATERONE ACETATE
  4. PREDNISOLONE [Concomitant]
     Active Substance: PREDNISOLONE
  5. CALCIUM CARBONATE\CHOLECALCIFEROL [Concomitant]
     Active Substance: CALCIUM CARBONATE\CHOLECALCIFEROL

REACTIONS (2)
  - Osteonecrosis [Not Recovered/Not Resolved]
  - Implant site infection [Not Recovered/Not Resolved]

NARRATIVE: CASE EVENT DATE: 20220404
